FAERS Safety Report 7935809 (Version 2)
Quarter: 2014Q4

REPORT INFORMATION
  Report Type: Report from Study
  Country: US (occurrence: US)
  Receive Date: 20110509
  Receipt Date: 20141210
  Transmission Date: 20150529
  Serious: No
  Sender: FDA-Public Use
  Company Number: US-ALEXION-A201000717

PATIENT

DRUGS (4)
  1. SOLIRIS [Suspect]
     Active Substance: ECULIZUMAB
     Dosage: 900 MG, Q2W
     Route: 042
  2. SOLIRIS [Suspect]
     Active Substance: ECULIZUMAB
     Indication: PAROXYSMAL NOCTURNAL HAEMOGLOBINURIA
     Dosage: 600 MG, QW
     Route: 042
     Dates: start: 200807, end: 200808
  3. SOLIRIS [Suspect]
     Active Substance: ECULIZUMAB
     Dosage: 900 MG, Q2W
     Route: 042
     Dates: start: 200808, end: 201006
  4. SOLIRIS [Suspect]
     Active Substance: ECULIZUMAB
     Dosage: 900 MG, Q12D
     Route: 042
     Dates: start: 201006, end: 201006

REACTIONS (14)
  - Chills [Recovered/Resolved]
  - Pyrexia [Unknown]
  - Blood lactate dehydrogenase increased [Not Recovered/Not Resolved]
  - Blood glucose increased [Unknown]
  - Blood iron increased [Not Recovered/Not Resolved]
  - Oesophageal disorder [Recovered/Resolved]
  - Headache [Recovered/Resolved]
  - Chromaturia [Recovered/Resolved]
  - Haemolysis [Recovered/Resolved]
  - Arthralgia [Recovered/Resolved]
  - Jaundice [Unknown]
  - Influenza like illness [Recovered/Resolved]
  - Pyrexia [Recovered/Resolved]
  - Muscle spasms [Unknown]

NARRATIVE: CASE EVENT DATE: 2010
